FAERS Safety Report 15962103 (Version 1)
Quarter: 2019Q1

REPORT INFORMATION
  Report Type: Spontaneous
  Country: US (occurrence: US)
  Receive Date: 20190214
  Receipt Date: 20190214
  Transmission Date: 20190417
  Serious: No
  Sender: FDA-Public Use
  Company Number: US-NEXGEN PHARMA, INC.-2062664

PATIENT
  Age: 24 Year
  Sex: Female

DRUGS (1)
  1. CHENODAL [Suspect]
     Active Substance: CHENODIOL
     Indication: DIARRHOEA NEONATAL
     Route: 048
     Dates: start: 20171210

REACTIONS (2)
  - Nausea [Recovering/Resolving]
  - Dizziness [Unknown]
